FAERS Safety Report 10204731 (Version 1)
Quarter: 2014Q2

REPORT INFORMATION
  Report Type: Spontaneous
  Country: PH (occurrence: PH)
  Receive Date: 20140529
  Receipt Date: 20140529
  Transmission Date: 20141212
  Serious: Yes (Other)
  Sender: FDA-Public Use
  Company Number: PH-GLAXOSMITHKLINE-B0997901A

PATIENT
  Age: 80 Year
  Sex: Male

DRUGS (2)
  1. DUODART [Suspect]
     Indication: BENIGN PROSTATIC HYPERPLASIA
     Dates: start: 20131101, end: 20140401
  2. STATINS [Concomitant]

REACTIONS (2)
  - Hepatitis B [Recovering/Resolving]
  - Alanine aminotransferase increased [Unknown]
